FAERS Safety Report 9287302 (Version 3)
Quarter: 2013Q2

REPORT INFORMATION
  Report Type: Spontaneous
  Country: SE (occurrence: SE)
  Receive Date: 20130513
  Receipt Date: 20130618
  Transmission Date: 20140414
  Serious: Yes (Hospitalization)
  Sender: FDA-Public Use
  Company Number: SE-ROCHE-1223825

PATIENT
  Age: 62 Year
  Sex: Male

DRUGS (6)
  1. TAMIFLU [Suspect]
     Indication: PRODUCT USED FOR UNKNOWN INDICATION
     Route: 048
     Dates: start: 20130320, end: 20130321
  2. LIPITOR [Concomitant]
     Route: 065
  3. METOPROLOL SANDOZ (SWEDEN) [Concomitant]
     Route: 065
  4. PROPAVAN [Concomitant]
     Route: 065
  5. MONOKET [Concomitant]
     Route: 065
  6. LACTULOSE [Concomitant]
     Dosage: ORANGE MEDA SLOUTION 670 MG/ML
     Route: 048

REACTIONS (6)
  - Confusional state [Recovered/Resolved]
  - Anxiety [Unknown]
  - Insomnia [Unknown]
  - Convulsion [Unknown]
  - Restlessness [Unknown]
  - Tremor [Unknown]
